FAERS Safety Report 15140475 (Version 2)
Quarter: 2018Q3

REPORT INFORMATION
  Report Type: Other
  Country: FR (occurrence: FR)
  Receive Date: 20180713
  Receipt Date: 20180727
  Transmission Date: 20181010
  Serious: Yes (Death)
  Sender: FDA-Public Use
  Company Number: FR-ACTELION-A-CH2018-175452

PATIENT
  Age: 68 Year
  Sex: Male

DRUGS (3)
  1. VALCHLOR [Suspect]
     Active Substance: MECHLORETHAMINE
     Indication: MYCOSIS FUNGOIDES
     Route: 061
  2. GEMCITABINE [Concomitant]
     Active Substance: GEMCITABINE\GEMCITABINE HYDROCHLORIDE
  3. TARGRETIN [Concomitant]
     Active Substance: BEXAROTENE

REACTIONS (3)
  - Septic shock [Fatal]
  - Drug effect incomplete [Unknown]
  - Thyroid disorder [Unknown]
